FAERS Safety Report 14485739 (Version 3)
Quarter: 2018Q2

REPORT INFORMATION
  Report Type: Spontaneous
  Country: US (occurrence: US)
  Receive Date: 20180205
  Receipt Date: 20180507
  Transmission Date: 20180711
  Serious: Yes (Other)
  Sender: FDA-Public Use
  Company Number: US-DSJP-DSU-2017-144867

PATIENT

DRUGS (1)
  1. BENICAR HCT [Suspect]
     Active Substance: HYDROCHLOROTHIAZIDE\OLMESARTAN MEDOXOMIL
     Indication: HYPERTENSION
     Dosage: 40-25 MG, QD
     Route: 048
     Dates: start: 20091216, end: 20170712

REACTIONS (8)
  - Acute kidney injury [Unknown]
  - Drug administration error [Unknown]
  - Gastrooesophageal reflux disease [Unknown]
  - Hiatus hernia [Unknown]
  - Constipation [Unknown]
  - Diverticulitis [Unknown]
  - Diverticulum intestinal [Unknown]
  - Sprue-like enteropathy [Unknown]

NARRATIVE: CASE EVENT DATE: 20091216
